FAERS Safety Report 6501614-5 (Version None)
Quarter: 2009Q4

REPORT INFORMATION
  Report Type: 
  Country: None (occurrence: None)
  Receive Date: 20091127
  Receipt Date: 20081124
  Transmission Date: 20100525
  Serious: Yes (Other)
  Sender: FDA-Public Use
  Company Number: WAES 0706USA03743

PATIENT
  Age: 84 Year
  Sex: Female
  Weight: 50.8029 kg

DRUGS (8)
  1. FOSAMAX [Suspect]
     Indication: OSTEOPOROSIS
     Dosage: 70 MG/WKY/PO : 70 MG/PO
     Route: 048
     Dates: start: 20050202, end: 20051123
  2. FOSAMAX [Suspect]
     Indication: OSTEOPOROSIS
     Dosage: 70 MG/WKY/PO : 70 MG/PO
     Route: 048
     Dates: start: 20060530
  3. FOSAMAX [Suspect]
     Indication: OSTEOPOROSIS
     Dosage: 70 MG/WKY/PO : 70 MG/PO
     Route: 048
     Dates: start: 20061005
  4. FOSAMAX [Suspect]
     Indication: OSTEOPOROSIS
     Dosage: 70 MG/WKY/PO : 70 MG/PO
     Route: 048
     Dates: start: 20070114
  5. ADALAT [Concomitant]
  6. PREVACID [Concomitant]
  7. PRILOSEC [Concomitant]
  8. TRAMADOL HYDROCHLORIDE [Concomitant]

REACTIONS (6)
  - ANXIETY [None]
  - ASTHMA [None]
  - CYST [None]
  - DEPRESSION [None]
  - MAMMOGRAM ABNORMAL [None]
  - OSTEONECROSIS [None]
